FAERS Safety Report 17381714 (Version 1)
Quarter: 2020Q1

REPORT INFORMATION
  Report Type: Spontaneous
  Country: NL (occurrence: NL)
  Receive Date: 20200206
  Receipt Date: 20200206
  Transmission Date: 20200409
  Serious: Yes (Hospitalization, Other)
  Sender: FDA-Public Use
  Company Number: NL-SA-2020SA026673

PATIENT
  Age: 66 Year
  Sex: Male
  Weight: 62 kg

DRUGS (8)
  1. LIDOCAINE/PRILOCAINE [Concomitant]
     Active Substance: LIDOCAINE\PRILOCAINE
  2. TAMSULOSINE [TAMSULOSIN] [Concomitant]
     Active Substance: TAMSULOSIN
  3. OXALIPLATIN. [Suspect]
     Active Substance: OXALIPLATIN
     Indication: COLORECTAL CANCER
     Dosage: 130 MG / M 2 IN 500 ML GLUCOSE 5% INFUSION, 2 TIMES TO THE PRESENT, 500 ML
     Dates: start: 20191021
  4. LOPERAMIDE [Concomitant]
     Active Substance: LOPERAMIDE
  5. CAPECITABINE. [Suspect]
     Active Substance: CAPECITABINE
     Indication: COLORECTAL CANCER
     Dosage: FILM-COATED TABLET, 500 MG (MILLIGRAM), 2 TIMES A DAY, 4
     Dates: start: 20191021
  6. PARACETAMOL [Concomitant]
     Active Substance: ACETAMINOPHEN
  7. LIDOCAINE. [Concomitant]
     Active Substance: LIDOCAINE
  8. BEVACIZUMAB. [Suspect]
     Active Substance: BEVACIZUMAB
     Indication: COLORECTAL CANCER
     Dosage: 7.5 MG / KG IN 100 ML OF NACL, 0.9% INFUSION, 1 TIME TO NOW, 100 ML
     Dates: start: 20191111

REACTIONS (1)
  - Hypokalaemia [Not Recovered/Not Resolved]

NARRATIVE: CASE EVENT DATE: 20191120
